FAERS Safety Report 6380255 (Version 5)
Quarter: 2013Q2

REPORT INFORMATION
  Report Type: Spontaneous
  Country: NL (occurrence: NL)
  Receive Date: 20070810
  Receipt Date: 20130617
  Transmission Date: 20140414
  Serious: Yes (Other)
  Sender: FDA-Public Use
  Company Number: NL-ABBOTT-07P-114-0376678-00

PATIENT
  Age: 66 Year
  Sex: Female
  Weight: 50 kg

DRUGS (8)
  1. PANTOPAC (CLARITHROMYCIN) [Suspect]
     Indication: HELICOBACTER INFECTION
     Route: 048
     Dates: start: 20070309, end: 20070314
  2. PANTOPAC (PANTOPRAZOLE SODIUM SESQUIHYDRATE) [Suspect]
     Indication: HELICOBACTER INFECTION
     Route: 048
     Dates: start: 20070309, end: 20070314
  3. PANTOPAC [Suspect]
     Indication: HELICOBACTER INFECTION
     Route: 048
     Dates: start: 20070309, end: 20070314
  4. RENITEC [Concomitant]
     Indication: HYPERTENSION
     Route: 048
  5. ISOPTIN [Concomitant]
     Indication: HYPERTENSION
     Route: 048
     Dates: start: 2006
  6. HYDROCHLOROTHIAZIDE [Concomitant]
     Indication: HYPERTENSION
     Route: 048
     Dates: start: 2006
  7. RANITIDINE [Concomitant]
     Indication: PRODUCT USED FOR UNKNOWN INDICATION
     Route: 048
  8. ACESISTEM [Concomitant]
     Indication: PRODUCT USED FOR UNKNOWN INDICATION

REACTIONS (2)
  - Bronchospasm [Recovered/Resolved]
  - Angioedema [Recovered/Resolved]
